FAERS Safety Report 23655852 (Version 2)
Quarter: 2024Q2

REPORT INFORMATION
  Report Type: Spontaneous
  Country: FR (occurrence: FR)
  Receive Date: 20240321
  Receipt Date: 20240531
  Transmission Date: 20240715
  Serious: Yes (Hospitalization)
  Sender: FDA-Public Use
  Company Number: None

PATIENT
  Age: 74 Year
  Sex: Male
  Weight: 85 kg

DRUGS (2)
  1. VENETOCLAX [Suspect]
     Active Substance: VENETOCLAX
     Indication: Chronic lymphocytic leukaemia
     Dosage: 20 MG
     Route: 048
     Dates: start: 20231122, end: 20240214
  2. OBINUTUZUMAB [Suspect]
     Active Substance: OBINUTUZUMAB
     Indication: Chronic lymphocytic leukaemia
     Dosage: TIME INTERVAL: CYCLICAL: CONCENTRATE FOR SOLUTION FOR INFUSION
     Route: 042
     Dates: start: 20231213, end: 20240214

REACTIONS (1)
  - Pericarditis [Recovering/Resolving]

NARRATIVE: CASE EVENT DATE: 20240214
